FAERS Safety Report 13042577 (Version 3)
Quarter: 2017Q1

REPORT INFORMATION
  Report Type: Report from Study
  Country: US (occurrence: US)
  Receive Date: 20161219
  Receipt Date: 20170112
  Transmission Date: 20170428
  Serious: Yes (Hospitalization)
  Sender: FDA-Public Use
  Company Number: US-BIOGEN-2016BI00331385

PATIENT
  Age: 16 Year
  Sex: Female
  Weight: 75 kg

DRUGS (11)
  1. KETOROLAC [Concomitant]
     Active Substance: KETOROLAC\KETOROLAC TROMETHAMINE
     Indication: PAIN
     Dosage: PRN FOR PAIN
     Route: 048
     Dates: start: 20161007
  2. LAMICTAL [Concomitant]
     Active Substance: LAMOTRIGINE
     Indication: AFFECTIVE DISORDER
     Route: 048
     Dates: start: 20160927
  3. NEURONTIN [Concomitant]
     Active Substance: GABAPENTIN
     Indication: HEADACHE
     Route: 048
     Dates: start: 20160815
  4. NEURONTIN [Concomitant]
     Active Substance: GABAPENTIN
     Indication: ARTHRALGIA
  5. ERGOCALCIFEROL. [Concomitant]
     Active Substance: ERGOCALCIFEROL
     Indication: PRODUCT USED FOR UNKNOWN INDICATION
     Dosage: EVERY SATURDAY
     Route: 048
     Dates: start: 20160912
  6. TYSABRI [Suspect]
     Active Substance: NATALIZUMAB
     Indication: RELAPSING-REMITTING MULTIPLE SCLEROSIS
     Dosage: INFUSED OVER 1 HOUR
     Route: 042
     Dates: start: 20160802, end: 20161128
  7. LAMICTAL [Concomitant]
     Active Substance: LAMOTRIGINE
     Route: 065
  8. SERTRALINE [Concomitant]
     Active Substance: SERTRALINE HYDROCHLORIDE
     Indication: AFFECTIVE DISORDER
     Route: 065
  9. ADDERALL XR [Concomitant]
     Active Substance: AMPHETAMINE ASPARTATE\AMPHETAMINE SULFATE\DEXTROAMPHETAMINE SACCHARATE\DEXTROAMPHETAMINE SULFATE
     Indication: PRODUCT USED FOR UNKNOWN INDICATION
     Route: 048
     Dates: start: 20161122
  10. AMBIEN [Concomitant]
     Active Substance: ZOLPIDEM TARTRATE
     Indication: INSOMNIA
     Dosage: EVERY BEDTIME FOR SLEEP
     Route: 065
  11. TYSABRI [Suspect]
     Active Substance: NATALIZUMAB
     Indication: MULTIPLE SCLEROSIS

REACTIONS (6)
  - Fatigue [Unknown]
  - Headache [Recovered/Resolved]
  - Asthenia [Unknown]
  - Multiple sclerosis relapse [Unknown]
  - Nuclear magnetic resonance imaging abnormal [Unknown]
  - Lethargy [Recovered/Resolved]

NARRATIVE: CASE EVENT DATE: 201609
